FAERS Safety Report 15188449 (Version 1)
Quarter: 2018Q3

REPORT INFORMATION
  Report Type: Report from Study
  Country: ES (occurrence: ES)
  Receive Date: 20180724
  Receipt Date: 20180724
  Transmission Date: 20181010
  Serious: Yes (Hospitalization)
  Sender: FDA-Public Use
  Company Number: ES-TEVA-2018-ES-857686

PATIENT
  Age: 72 Year
  Sex: Female

DRUGS (7)
  1. FUROSEMIDA 40 [Suspect]
     Active Substance: FUROSEMIDE
     Dosage: 1?0?0
     Route: 048
     Dates: start: 20141111, end: 20170411
  2. LANSOPRAZOL 30 [Concomitant]
     Dosage: 1?0?0
     Route: 048
     Dates: start: 20141111
  3. BISOPROLOL 5 [Concomitant]
     Active Substance: BISOPROLOL
     Dosage: 1?0?0
     Route: 048
     Dates: start: 20141111
  4. SEVIKAR/HCT 40/10/12.5 [Interacting]
     Active Substance: AMLODIPINE BESYLATE\HYDROCHLOROTHIAZIDE\OLMESARTAN MEDOXOMIL
     Dosage: 1?0?0
     Route: 048
     Dates: start: 20140101
  5. XARELTO [Concomitant]
     Active Substance: RIVAROXABAN
     Dosage: 1 CP
     Route: 048
     Dates: start: 20141111
  6. FLUCONAZOL [Concomitant]
     Active Substance: FLUCONAZOLE
     Indication: OROPHARYNGEAL CANDIDIASIS
     Dosage: 400 MG
     Route: 048
     Dates: start: 20170401, end: 20170411
  7. ELECOR 25 [Interacting]
     Active Substance: EPLERENONE
     Dosage: 1?0?0
     Route: 048
     Dates: start: 20141111, end: 20170411

REACTIONS (2)
  - Drug interaction [Unknown]
  - Hyponatraemia [Recovered/Resolved]

NARRATIVE: CASE EVENT DATE: 20141111
